FAERS Safety Report 15175537 (Version 2)
Quarter: 2018Q3

REPORT INFORMATION
  Report Type: Report from Study
  Country: US (occurrence: US)
  Receive Date: 20180720
  Receipt Date: 20180824
  Transmission Date: 20181010
  Serious: Yes (Other)
  Sender: FDA-Public Use
  Company Number: US-AMGEN-USASL2018063141

PATIENT
  Age: 76 Year
  Sex: Female

DRUGS (2)
  1. REPATHA [Suspect]
     Active Substance: EVOLOCUMAB
     Indication: BLOOD CHOLESTEROL INCREASED
     Dosage: 140 MG, Q2WK
     Route: 065
     Dates: start: 20180403, end: 201805
  2. REPATHA [Suspect]
     Active Substance: EVOLOCUMAB
     Dosage: 140 MG, QMO
     Route: 065
     Dates: start: 20180603, end: 2018

REACTIONS (12)
  - Atrial fibrillation [Unknown]
  - Diarrhoea [Unknown]
  - Blood glucose increased [Unknown]
  - High density lipoprotein decreased [Not Recovered/Not Resolved]
  - Dysphonia [Not Recovered/Not Resolved]
  - Dry throat [Not Recovered/Not Resolved]
  - Night sweats [Not Recovered/Not Resolved]
  - Oropharyngeal pain [Unknown]
  - Ear pain [Not Recovered/Not Resolved]
  - Myalgia [Unknown]
  - Pain [Not Recovered/Not Resolved]
  - Hyperhidrosis [Unknown]

NARRATIVE: CASE EVENT DATE: 2018
